FAERS Safety Report 25055385 (Version 1)
Quarter: 2025Q1

REPORT INFORMATION
  Report Type: Spontaneous
  Country: US (occurrence: US)
  Receive Date: 20250308
  Receipt Date: 20250308
  Transmission Date: 20250409
  Serious: No
  Sender: ABBVIE
  Company Number: US-ABBVIE-6158149

PATIENT
  Sex: Female

DRUGS (1)
  1. VRAYLAR [Suspect]
     Active Substance: CARIPRAZINE
     Indication: Bipolar I disorder
     Route: 048
     Dates: end: 2025

REACTIONS (8)
  - Dyspnoea [Unknown]
  - Bipolar I disorder [Unknown]
  - Vomiting [Unknown]
  - Panic reaction [Unknown]
  - Nausea [Unknown]
  - Headache [Unknown]
  - Emotional disorder [Unknown]
  - Confusional state [Unknown]

NARRATIVE: CASE EVENT DATE: 20250101
